FAERS Safety Report 7857343-9 (Version None)
Quarter: 2011Q4

REPORT INFORMATION
  Report Type: 
  Country: None (occurrence: None)
  Receive Date: 20111027
  Receipt Date: 20111018
  Transmission Date: 20120403
  Serious: No
  Sender: FDA-Public Use
  Company Number: US-BIOGENIDEC-2011BI039859

PATIENT
  Age: 37 Year
  Sex: Female

DRUGS (4)
  1. TYLENOL (CAPLET) [Concomitant]
     Indication: PREMEDICATION
     Dates: start: 20110101
  2. CLARITIN [Concomitant]
     Indication: PREMEDICATION
     Dates: start: 20110101
  3. TYSABRI [Suspect]
     Indication: MULTIPLE SCLEROSIS
     Route: 042
     Dates: start: 20110907
  4. PRISTIQ [Concomitant]
     Indication: DEPRESSION
     Dates: start: 20100101

REACTIONS (3)
  - FATIGUE [None]
  - NASOPHARYNGITIS [None]
  - HEADACHE [None]
